FAERS Safety Report 4941795-8 (Version None)
Quarter: 2006Q1

REPORT INFORMATION
  Report Type: 
  Country: None (occurrence: None)
  Receive Date: 20060307
  Receipt Date: 20060221
  Transmission Date: 20060701
  Serious: Yes (Other)
  Sender: FDA-Public Use
  Company Number: US016646

PATIENT
  Age: 40 Year
  Sex: Female
  Weight: 71.2147 kg

DRUGS (12)
  1. GABITRIL [Suspect]
     Indication: HEADACHE
     Dosage: 2 MG QHS ORAL
     Route: 048
     Dates: start: 20050929, end: 20051008
  2. GABITRIL [Suspect]
     Indication: HEADACHE
     Dosage: 4 MG QHS ORAL
     Route: 048
     Dates: start: 20051009, end: 20051226
  3. WELLBUTRIN SR [Concomitant]
  4. AMITRIPTYLINE HCL [Concomitant]
  5. METHADONE [Concomitant]
  6. SOMA [Concomitant]
  7. HYDROCHLOROTHIAZIDE [Concomitant]
  8. KLOR-CON [Concomitant]
  9. ZETIA [Concomitant]
  10. MIRALAX [Concomitant]
  11. MIDRIN [Concomitant]
  12. NAPROXEN [Concomitant]

REACTIONS (8)
  - CONVULSION [None]
  - FALL [None]
  - HAEMATOMA [None]
  - HEAD INJURY [None]
  - LACERATION [None]
  - MENTAL STATUS CHANGES [None]
  - MIXED RECEPTIVE-EXPRESSIVE LANGUAGE DISORDER [None]
  - TONIC CLONIC MOVEMENTS [None]
